FAERS Safety Report 4949274-9 (Version None)
Quarter: 2006Q1

REPORT INFORMATION
  Report Type: 
  Country: None (occurrence: None)
  Receive Date: 20060315
  Receipt Date: 20060302
  Transmission Date: 20060701
  Serious: Yes (Other)
  Sender: FDA-Public Use
  Company Number: 2006033346

PATIENT
  Age: 58 Year
  Sex: Female
  Weight: 90.7194 kg

DRUGS (3)
  1. DETROL LA CAPSULE, PROLONGED RELEASE (TOLTERODINE RELEASE (TOLTERODINE [Suspect]
     Indication: MICTURITION DISORDER
     Dosage: 4 MG (4 MG, 1 IN 1 D)
     Dates: start: 20020101
  2. ATENOLOL [Concomitant]
  3. PREMARIN [Concomitant]

REACTIONS (2)
  - THYROID OPERATION [None]
  - URINARY TRACT DISORDER [None]
